FAERS Safety Report 15554683 (Version 2)
Quarter: 2019Q4

REPORT INFORMATION
  Report Type: Report from Study
  Country: None (occurrence: US)
  Receive Date: 20181026
  Receipt Date: 20191222
  Transmission Date: 20200122
  Serious: Yes (Other)
  Sender: FDA-Public Use
  Company Number: US-ABBVIE-18K-163-2526782-00

PATIENT
  Age: 64 Year
  Sex: Male

DRUGS (3)
  1. ATENOLOL. [Concomitant]
     Active Substance: ATENOLOL
     Indication: CARDIAC FLUTTER
  2. ATENOLOL. [Concomitant]
     Active Substance: ATENOLOL
     Indication: PALPITATIONS
  3. HUMIRA [Suspect]
     Active Substance: ADALIMUMAB
     Indication: RHEUMATOID ARTHRITIS
     Route: 058
     Dates: start: 2017

REACTIONS (2)
  - Wrong technique in product usage process [Unknown]
  - Dementia [Not Recovered/Not Resolved]

NARRATIVE: CASE EVENT DATE: 20181002
